FAERS Safety Report 4344798-X (Version None)
Quarter: 2004Q2

REPORT INFORMATION
  Report Type: 
  Country: None (occurrence: None)
  Receive Date: 20040420
  Receipt Date: 20040407
  Transmission Date: 20050107
  Serious: Yes (Life-Threatening, Hospitalization)
  Sender: FDA-Public Use
  Company Number: PK-SHR-04-023675

PATIENT
  Age: 31 Year
  Sex: Female

DRUGS (1)
  1. ULTRAVIST 370 [Suspect]
     Indication: ANGIOGRAM CEREBRAL
     Dosage: 50 ML 1 DOSE, INTRA-ARTERIAL
     Route: 013
     Dates: start: 20040406, end: 20040406

REACTIONS (3)
  - ABDOMINAL DISCOMFORT [None]
  - FEELING ABNORMAL [None]
  - LOSS OF CONSCIOUSNESS [None]
